FAERS Safety Report 23636492 (Version 1)
Quarter: 2024Q1

REPORT INFORMATION
  Report Type: Spontaneous
  Country: DE (occurrence: DE)
  Receive Date: 20240315
  Receipt Date: 20240315
  Transmission Date: 20240409
  Serious: Yes (Other)
  Sender: FDA-Public Use
  Company Number: DE-PFIZER INC-202400062501

PATIENT
  Age: 7 Year
  Sex: Female

DRUGS (7)
  1. METHOTREXATE SODIUM [Suspect]
     Active Substance: METHOTREXATE SODIUM
     Indication: T-cell lymphoma
     Dosage: UNK
     Route: 037
  2. VINCRISTINE SULFATE [Suspect]
     Active Substance: VINCRISTINE SULFATE
     Indication: T-cell lymphoma
     Dosage: UNK
  3. CEFTAZIDIME [Suspect]
     Active Substance: CEFTAZIDIME
     Indication: C-reactive protein increased
     Dosage: UNK
  4. CYCLOPHOSPHAMIDE [Suspect]
     Active Substance: CYCLOPHOSPHAMIDE
     Indication: T-cell lymphoma
     Dosage: 900 MG/M2, AT TREATMENT DAY (TD) 29
  5. DAUNORUBICIN HYDROCHLORIDE [Suspect]
     Active Substance: DAUNORUBICIN HYDROCHLORIDE
     Indication: T-cell lymphoma
     Dosage: UNK
  6. OXACILLIN [Suspect]
     Active Substance: OXACILLIN SODIUM
     Indication: C-reactive protein increased
     Dosage: UNK
  7. PHENYTOIN [Concomitant]
     Active Substance: PHENYTOIN
     Indication: Seizure
     Dosage: UNK

REACTIONS (2)
  - Hyperhomocysteinaemia [Recovering/Resolving]
  - Glutathione synthetase deficiency [Recovering/Resolving]
